FAERS Safety Report 25382174 (Version 2)
Quarter: 2025Q4

REPORT INFORMATION
  Report Type: Spontaneous
  Country: US (occurrence: US)
  Receive Date: 20250531
  Receipt Date: 20251104
  Transmission Date: 20260117
  Serious: No
  Sender: CELLTRION
  Company Number: US-CELLTRION INC.-2025US015780

PATIENT

DRUGS (2)
  1. ZYMFENTRA [Suspect]
     Active Substance: INFLIXIMAB-DYYB
     Indication: Colitis ulcerative
     Dosage: 120MG INJECTED SQ ONCE EVERY TWO WEEKS
     Route: 058
     Dates: start: 20250515
  2. ZYMFENTRA [Suspect]
     Active Substance: INFLIXIMAB-DYYB
     Dosage: 120 MG, Q2WEEKS
     Route: 058
     Dates: start: 20250610

REACTIONS (3)
  - Nasopharyngitis [Recovered/Resolved]
  - Headache [Recovered/Resolved]
  - Fatigue [Recovered/Resolved]

NARRATIVE: CASE EVENT DATE: 20250516
